FAERS Safety Report 7512943-0 (Version None)
Quarter: 2011Q2

REPORT INFORMATION
  Report Type: 
  Country: None (occurrence: None)
  Receive Date: 20110531
  Receipt Date: 20110518
  Transmission Date: 20111010
  Serious: No
  Sender: FDA-Public Use
  Company Number: JP-ASTRAZENECA-2011SE03677

PATIENT
  Age: 70 Year
  Sex: Male
  Weight: 55 kg

DRUGS (5)
  1. FERO-GRADUMET [Concomitant]
     Indication: ANAEMIA
     Route: 048
     Dates: start: 20110107, end: 20110121
  2. EPOGIN [Concomitant]
     Indication: ANAEMIA
     Route: 058
     Dates: start: 20110107
  3. FERRICON [Concomitant]
     Indication: ANAEMIA
     Route: 042
     Dates: start: 20110107
  4. CASODEX [Suspect]
     Indication: PROSTATE CANCER
     Route: 048
     Dates: start: 20101206, end: 20110114
  5. ZOLADEX [Suspect]
     Indication: PROSTATE CANCER
     Route: 058
     Dates: start: 20101206

REACTIONS (1)
  - HEPATIC FUNCTION ABNORMAL [None]
